FAERS Safety Report 17577012 (Version 1)
Quarter: 2020Q1

REPORT INFORMATION
  Report Type: Spontaneous
  Country: US (occurrence: US)
  Receive Date: 20200319
  Receipt Date: 20200319
  Transmission Date: 20200409
  Serious: No
  Sender: FDA-Public Use
  Company Number: None

PATIENT
  Sex: Male

DRUGS (1)
  1. PANZYGA [Suspect]
     Active Substance: HUMAN IMMUNOGLOBULIN G
     Indication: MYASTHENIA GRAVIS
     Route: 042
     Dates: start: 20200229

REACTIONS (6)
  - Peripheral swelling [None]
  - Suicidal ideation [None]
  - Fatigue [None]
  - Joint swelling [None]
  - Myocardial infarction [None]
  - Erythema [None]
